FAERS Safety Report 5064291-9 (Version None)
Quarter: 2006Q3

REPORT INFORMATION
  Report Type: 
  Country: None (occurrence: None)
  Receive Date: 20060728
  Receipt Date: 20060421
  Transmission Date: 20061208
  Serious: Yes (Other)
  Sender: FDA-Public Use
  Company Number: US-SP-2006-00911

PATIENT
  Age: 13 Year
  Sex: Female

DRUGS (14)
  1. DECAVAC [Suspect]
     Indication: IMMUNISATION
     Route: 065
     Dates: start: 20060111
  2. DECAVAC [Suspect]
     Route: 065
     Dates: start: 20060111
  3. DECAVAC [Suspect]
     Route: 065
     Dates: start: 20060111
  4. TUBERSOL [Suspect]
     Indication: TUBERCULIN TEST
     Route: 065
     Dates: start: 20060111
  5. TUBERSOL [Suspect]
     Route: 065
     Dates: start: 20060111
  6. TUBERSOL [Suspect]
     Route: 065
     Dates: start: 20060111
  7. HEPATITIS A VACCINE [Suspect]
     Indication: IMMUNISATION
     Route: 065
     Dates: start: 20060111
  8. HEPATITIS A VACCINE [Suspect]
     Route: 065
     Dates: start: 20060111
  9. INFLUENZA VIRUS VACC USP TRIVAL A AND B, SUBVIRION-U [Concomitant]
     Indication: IMMUNISATION
     Route: 065
     Dates: start: 20051205
  10. ALLERGY SHOTS [Concomitant]
  11. SINGULAIR [Concomitant]
  12. NASONEX [Concomitant]
  13. ADVAIR DISKUS 100/50 [Concomitant]
  14. SUDAFED 12 HOUR [Concomitant]

REACTIONS (13)
  - ABASIA [None]
  - ACNE [None]
  - ARTHRALGIA [None]
  - ASTHENIA [None]
  - CHEST PAIN [None]
  - HEADACHE [None]
  - INSOMNIA [None]
  - MALAISE [None]
  - NAUSEA [None]
  - PHARYNGOLARYNGEAL PAIN [None]
  - SINUSITIS [None]
  - VIRAL UPPER RESPIRATORY TRACT INFECTION [None]
  - VOMITING [None]
